FAERS Safety Report 21503452 (Version 1)
Quarter: 2022Q4

REPORT INFORMATION
  Report Type: Report from Study
  Country: US (occurrence: US)
  Receive Date: 20221025
  Receipt Date: 20221025
  Transmission Date: 20230113
  Serious: No
  Sender: FDA-Public Use
  Company Number: US-ABBVIE-4164140

PATIENT
  Sex: Female

DRUGS (2)
  1. SKYRIZI [Suspect]
     Active Substance: RISANKIZUMAB-RZAA
     Indication: Psoriasis
     Dosage: WEEK 0 , 1 IN ONCE, FORM STRENGTH: 150 MG
     Route: 058
     Dates: start: 20220815, end: 20220815
  2. SKYRIZI [Suspect]
     Active Substance: RISANKIZUMAB-RZAA
     Dosage: WEEK 4, 1 IN ONCE. FORM STRENGTH: 150 MG
     Route: 058
     Dates: start: 20220920, end: 20220920

REACTIONS (1)
  - Fungal foot infection [Not Recovered/Not Resolved]

NARRATIVE: CASE EVENT DATE: 20220101
